FAERS Safety Report 7537841-8 (Version None)
Quarter: 2011Q2

REPORT INFORMATION
  Report Type: 
  Country: None (occurrence: None)
  Receive Date: 20110609
  Receipt Date: 20110609
  Transmission Date: 20111010
  Serious: Yes (Hospitalization, Other)
  Sender: FDA-Public Use
  Company Number: US-ABBOTT-11P-163-0730232-00

PATIENT
  Age: 69 Year
  Sex: Male

DRUGS (14)
  1. CELEBREX [Concomitant]
     Indication: RHEUMATOID ARTHRITIS
  2. NIACIN [Concomitant]
     Indication: SUPPLEMENTATION THERAPY
     Route: 048
  3. HUMIRA [Suspect]
     Indication: RHEUMATOID ARTHRITIS
     Route: 058
     Dates: start: 20090101, end: 20100801
  4. NEXIUM [Concomitant]
     Indication: GASTROOESOPHAGEAL REFLUX DISEASE
     Route: 048
  5. CALCIUM CARBONATE [Concomitant]
     Indication: MINERAL SUPPLEMENTATION
     Route: 048
  6. MAGNESIUM SULFATE [Concomitant]
     Indication: MINERAL SUPPLEMENTATION
     Route: 048
  7. METHOTREXATE [Concomitant]
     Indication: RHEUMATOID ARTHRITIS
     Route: 048
  8. HUMIRA [Suspect]
     Route: 058
     Dates: start: 20100801
  9. GABAPENTIN [Concomitant]
     Indication: NEURALGIA
     Route: 048
  10. VITAMIN D [Concomitant]
     Indication: VITAMIN SUPPLEMENTATION
     Route: 048
  11. FISH OIL [Concomitant]
     Indication: SUPPLEMENTATION THERAPY
     Route: 048
  12. VITAMIN E [Concomitant]
     Indication: VITAMIN SUPPLEMENTATION
     Route: 048
  13. ASCORBIC ACID [Concomitant]
     Indication: VITAMIN SUPPLEMENTATION
     Route: 048
  14. NIACIN [Concomitant]
     Indication: BLOOD CHOLESTEROL INCREASED

REACTIONS (9)
  - KNEE ARTHROPLASTY [None]
  - INJECTION SITE HAEMATOMA [None]
  - PAIN [None]
  - PROSTATOMEGALY [None]
  - PAIN IN EXTREMITY [None]
  - TOOTH EXTRACTION [None]
  - PROCEDURAL COMPLICATION [None]
  - HIP ARTHROPLASTY [None]
  - DRUG INEFFECTIVE [None]
